FAERS Safety Report 13171933 (Version 10)
Quarter: 2018Q1

REPORT INFORMATION
  Report Type: Spontaneous
  Country: US (occurrence: US)
  Receive Date: 20170201
  Receipt Date: 20180220
  Transmission Date: 20180508
  Serious: No
  Sender: FDA-Public Use
  Company Number: US-PFIZER INC-2017038408

PATIENT
  Age: 80 Year
  Sex: Female

DRUGS (5)
  1. FASLODEX [Concomitant]
     Active Substance: FULVESTRANT
     Dosage: UNK
  2. IBRANCE [Suspect]
     Active Substance: PALBOCICLIB
     Dosage: 125 MG, CYCLIC (1 CAPSULE BY MOUTH DAILY EVERY MORNING FOR 21 DAYS WITH 1 WEEK OFF)
     Route: 048
     Dates: start: 201612
  3. ASPIRIN. [Suspect]
     Active Substance: ASPIRIN
     Dosage: UNK
  4. IBRANCE [Suspect]
     Active Substance: PALBOCICLIB
     Indication: BREAST CANCER FEMALE
     Dosage: 125 MG, CYCLIC [EVERY MORNING FOR 21 DAYS W/1 WEEK OFF]
     Route: 048
     Dates: start: 201611
  5. PLAVIX [Concomitant]
     Active Substance: CLOPIDOGREL BISULFATE
     Dosage: UNK
     Dates: end: 201704

REACTIONS (9)
  - Decreased appetite [Recovering/Resolving]
  - Alopecia [Unknown]
  - Red blood cell count decreased [Recovered/Resolved]
  - Rhinorrhoea [Unknown]
  - Full blood count decreased [Unknown]
  - Platelet count decreased [Unknown]
  - Memory impairment [Unknown]
  - Epistaxis [Recovered/Resolved]
  - Weight decreased [Recovering/Resolving]

NARRATIVE: CASE EVENT DATE: 201611
